FAERS Safety Report 6254310-6 (Version None)
Quarter: 2009Q3

REPORT INFORMATION
  Report Type: 
  Country: None (occurrence: None)
  Receive Date: 20090702
  Receipt Date: 20090619
  Transmission Date: 20100115
  Serious: Yes (Hospitalization)
  Sender: FDA-Public Use
  Company Number: US-BIOGENIDEC-2009BI005784

PATIENT
  Age: 36 Year
  Sex: Female
  Weight: 74 kg

DRUGS (3)
  1. AVONEX [Suspect]
     Indication: MULTIPLE SCLEROSIS
     Route: 030
  2. AVONEX [Suspect]
     Route: 030
  3. AVONEX [Suspect]
     Route: 030
     Dates: start: 20040101, end: 20050201

REACTIONS (9)
  - BURSITIS [None]
  - CEREBRAL ARTERY EMBOLISM [None]
  - CEREBROVASCULAR ACCIDENT [None]
  - FALL [None]
  - FATIGUE [None]
  - HEMIPLEGIA [None]
  - JOINT DISLOCATION [None]
  - JOINT INJURY [None]
  - MEMORY IMPAIRMENT [None]
